FAERS Safety Report 4800063-5 (Version None)
Quarter: 2005Q4

REPORT INFORMATION
  Report Type: 
  Country: None (occurrence: None)
  Receive Date: 20051013
  Receipt Date: 20050930
  Transmission Date: 20060501
  Serious: Yes (Hospitalization)
  Sender: FDA-Public Use
  Company Number: 2005137024

PATIENT
  Age: 40 Year
  Sex: Female
  Weight: 70 kg

DRUGS (1)
  1. FLUCONAZOLE [Suspect]
     Indication: CANDIDIASIS
     Dosage: (150 MG), ORAL
     Route: 048
     Dates: start: 20050520, end: 20050520

REACTIONS (3)
  - ANGIONEUROTIC OEDEMA [None]
  - COUGH [None]
  - HEADACHE [None]
